FAERS Safety Report 21811143 (Version 1)
Quarter: 2023Q1

REPORT INFORMATION
  Report Type: Spontaneous
  Country: US (occurrence: None)
  Receive Date: 20230102
  Receipt Date: 20230102
  Transmission Date: 20230418
  Serious: Yes (Life-Threatening, Other)
  Sender: FDA-Public Use
  Company Number: None

PATIENT
  Age: 30 Year
  Sex: Female
  Weight: 76.5 kg

DRUGS (1)
  1. MAGNESIUM CITRATE SALINE LAXATIVE [Suspect]
     Active Substance: MAGNESIUM CITRATE
     Indication: Irritable bowel syndrome
     Dosage: OTHER QUANTITY : 10 FL OZ;?OTHER FREQUENCY : DRANK THE BOTTLE;?
     Route: 048
     Dates: start: 20220802, end: 20220802

REACTIONS (3)
  - Product contamination microbial [None]
  - Illness [None]
  - Recalled product administered [None]

NARRATIVE: CASE EVENT DATE: 20220802
